FAERS Safety Report 15130900 (Version 5)
Quarter: 2018Q3

REPORT INFORMATION
  Report Type: Report from Study
  Country: US (occurrence: US)
  Receive Date: 20180711
  Receipt Date: 20180920
  Transmission Date: 20181010
  Serious: Yes (Hospitalization)
  Sender: FDA-Public Use
  Company Number: US-PFIZER INC-2018278110

PATIENT
  Age: 72 Year
  Sex: Female
  Weight: 61.88 kg

DRUGS (18)
  1. BLINDED PF?06425090 [Suspect]
     Active Substance: INVESTIGATIONAL PRODUCT
     Dosage: SINGLE DOSE
     Route: 030
     Dates: start: 20171113, end: 20171113
  2. FENOFIBRATE. [Concomitant]
     Active Substance: FENOFIBRATE
     Indication: DYSLIPIDAEMIA
     Dosage: 120 MG, 1X/DAY
     Route: 048
     Dates: start: 1990
  3. ELIQUIS [Concomitant]
     Active Substance: APIXABAN
     Indication: ATRIAL FLUTTER
     Dosage: 5 MG, 2X/DAY (EVERY 12 HOURS)
     Route: 048
     Dates: start: 201806
  4. BLINDED PLACEBO [Suspect]
     Active Substance: INVESTIGATIONAL PRODUCT
     Indication: CLOSTRIDIUM DIFFICILE IMMUNISATION
     Dosage: SINGLE DOSE
     Route: 030
     Dates: start: 20180430, end: 20180430
  5. BLINDED PLACEBO [Suspect]
     Active Substance: INVESTIGATIONAL PRODUCT
     Indication: CLOSTRIDIUM DIFFICILE IMMUNISATION
     Dosage: SINGLE DOSE
     Route: 030
     Dates: start: 20180430, end: 20180430
  6. LYRICA [Suspect]
     Active Substance: PREGABALIN
     Indication: DIABETIC NEUROPATHY
     Dosage: 150 MG, 3X/DAY
     Route: 048
     Dates: start: 2002, end: 20180627
  7. CARDIZEM [Concomitant]
     Active Substance: DILTIAZEM HYDROCHLORIDE
     Indication: ATRIAL FLUTTER
     Dosage: 120 MG, 1X/DAY
     Route: 048
     Dates: start: 201806
  8. BLINDED PF?06425090 [Suspect]
     Active Substance: INVESTIGATIONAL PRODUCT
     Indication: CLOSTRIDIUM DIFFICILE IMMUNISATION
     Dosage: SINGLE DOSE
     Route: 030
     Dates: start: 20180430, end: 20180430
  9. BLINDED PF?06425090 [Suspect]
     Active Substance: INVESTIGATIONAL PRODUCT
     Dosage: SINGLE DOSE
     Route: 030
     Dates: start: 20171211, end: 20171211
  10. BLINDED PLACEBO [Suspect]
     Active Substance: INVESTIGATIONAL PRODUCT
     Dosage: SINGLE DOSE
     Route: 030
     Dates: start: 20171113, end: 20171113
  11. BLINDED PF?06425090 [Suspect]
     Active Substance: INVESTIGATIONAL PRODUCT
     Indication: CLOSTRIDIUM DIFFICILE IMMUNISATION
     Dosage: SINGLE DOSE
     Route: 030
     Dates: start: 20180430, end: 20180430
  12. LEVOTHYROXINE. [Concomitant]
     Active Substance: LEVOTHYROXINE
     Indication: HYPOTHYROIDISM
     Dosage: 125 UG, 1X/DAY
     Route: 048
     Dates: start: 1995
  13. BLINDED PF?06425090 [Suspect]
     Active Substance: INVESTIGATIONAL PRODUCT
     Dosage: SINGLE DOSE
     Route: 030
     Dates: start: 20171211, end: 20171211
  14. BLINDED PLACEBO [Suspect]
     Active Substance: INVESTIGATIONAL PRODUCT
     Dosage: SINGLE DOSE
     Route: 030
     Dates: start: 20171211, end: 20171211
  15. BLINDED PF?06425090 [Suspect]
     Active Substance: INVESTIGATIONAL PRODUCT
     Dosage: SINGLE DOSE
     Route: 030
     Dates: start: 20171113, end: 20171113
  16. BLINDED PLACEBO [Suspect]
     Active Substance: INVESTIGATIONAL PRODUCT
     Dosage: SINGLE DOSE
     Route: 030
     Dates: start: 20171113, end: 20171113
  17. BLINDED PLACEBO [Suspect]
     Active Substance: INVESTIGATIONAL PRODUCT
     Dosage: SINGLE DOSE
     Route: 030
     Dates: start: 20171211, end: 20171211
  18. LOSARTAN. [Concomitant]
     Active Substance: LOSARTAN
     Indication: HYPERTENSION
     Dosage: 50 MG, 1X/DAY
     Route: 048
     Dates: start: 2009

REACTIONS (1)
  - Toxicity to various agents [Recovered/Resolved]

NARRATIVE: CASE EVENT DATE: 20180627
